FAERS Safety Report 5614257-2 (Version None)
Quarter: 2008Q1

REPORT INFORMATION
  Report Type: 
  Country: None (occurrence: None)
  Receive Date: 20080205
  Receipt Date: 20080124
  Transmission Date: 20080703
  Serious: Yes (Other)
  Sender: FDA-Public Use
  Company Number: US-PFIZER INC-2007100938

PATIENT
  Age: 48 Year
  Sex: Female
  Weight: 117.9 kg

DRUGS (5)
  1. LYRICA [Suspect]
  2. NEURONTIN [Concomitant]
  3. EFFEXOR [Concomitant]
  4. LITHIUM CARBONATE [Concomitant]
  5. ZYPREXA [Concomitant]

REACTIONS (2)
  - CONVULSION [None]
  - DIABETIC NEUROPATHY [None]
